FAERS Safety Report 9536021 (Version 1)
Quarter: 2013Q2

REPORT INFORMATION
  Report Type: Spontaneous
  Country: US (occurrence: None)
  Receive Date: 20130507
  Receipt Date: 20130507
  Transmission Date: 20140414
  Serious: Yes (Other)
  Sender: FDA-Public Use
  Company Number: PHEH2012US025101

PATIENT
  Age: 32 Year
  Sex: Female

DRUGS (13)
  1. AFINITOR [Suspect]
     Indication: TUBEROUS SCLEROSIS
     Route: 048
     Dates: start: 20101227
  2. TOPAMAX (TOPIRAMATE) [Concomitant]
  3. LAMICTAL (LAMOTRIGINE) [Concomitant]
  4. KLONOPIN (CLONAZEPAM) [Concomitant]
  5. PROGESTOGENS (NO INGREDIENT/SUBSTANCES) [Concomitant]
  6. VITAMIN B12 (CYANOCOBALAMIN) [Concomitant]
  7. VITAMIN D (ERGOCALCIFEROL) [Concomitant]
  8. CALCIUM (CALCIUM) [Concomitant]
  9. BANZEL (RUFINAMIDE) [Concomitant]
  10. DOXEPIN (DOXEPIN) [Concomitant]
  11. POTASSIUM (POTASSIUM) [Concomitant]
  12. MAGNESIUM (MAGNESIUM) [Concomitant]
  13. FIBER (POLYCARBOPHIL CALCIUM) [Concomitant]

REACTIONS (1)
  - Seasonal allergy [None]
